FAERS Safety Report 9525305 (Version 1)
Quarter: 2013Q3

REPORT INFORMATION
  Report Type: Spontaneous
  Country: US (occurrence: None)
  Receive Date: 20130913
  Receipt Date: 20130913
  Transmission Date: 20140515
  Serious: No
  Sender: FDA-Public Use
  Company Number: None

PATIENT
  Age: 55 Year
  Sex: Male

DRUGS (1)
  1. RIBAVIRIN [Suspect]
     Dosage: 600MG  BID  PO
     Route: 048
     Dates: start: 20130823

REACTIONS (1)
  - Rash [None]
